FAERS Safety Report 19123561 (Version 3)
Quarter: 2021Q2

REPORT INFORMATION
  Report Type: Report from Study
  Country: US (occurrence: US)
  Receive Date: 20210412
  Receipt Date: 20210603
  Transmission Date: 20210717
  Serious: No
  Sender: FDA-Public Use
  Company Number: NVSC2021US081767

PATIENT
  Age: 61 Year
  Sex: Male

DRUGS (1)
  1. ENTRESTO [Suspect]
     Active Substance: SACUBITRIL\VALSARTAN
     Indication: CARDIAC FAILURE
     Dosage: 1 DF(49.51 MG), BID
     Route: 048
     Dates: start: 2020

REACTIONS (4)
  - Headache [Unknown]
  - Seasonal allergy [Unknown]
  - Sneezing [Unknown]
  - Nausea [Unknown]

NARRATIVE: CASE EVENT DATE: 20210407
